FAERS Safety Report 4901361-7 (Version None)
Quarter: 2006Q1

REPORT INFORMATION
  Report Type: 
  Country: None (occurrence: None)
  Receive Date: 20060206
  Receipt Date: 20060123
  Transmission Date: 20060701
  Serious: Yes (Hospitalization)
  Sender: FDA-Public Use
  Company Number: ESWYE327824JAN06

PATIENT
  Sex: Male

DRUGS (1)
  1. ENBREL [Suspect]
     Indication: PSORIASIS
     Route: 058
     Dates: start: 20051201, end: 20060112

REACTIONS (6)
  - BLOOD IRON DECREASED [None]
  - ERYTHRODERMIC PSORIASIS [None]
  - FEELING COLD [None]
  - HYPOPROTEINAEMIA [None]
  - PYREXIA [None]
  - URTICARIA [None]
